FAERS Safety Report 6512293-5 (Version None)
Quarter: 2009Q4

REPORT INFORMATION
  Report Type: 
  Country: None (occurrence: None)
  Receive Date: 20091222
  Receipt Date: 20090827
  Transmission Date: 20100525
  Serious: No
  Sender: FDA-Public Use
  Company Number: US-ASTRAZENECA-2009UW19669

PATIENT
  Age: 78 Year
  Sex: Female
  Weight: 73 kg

DRUGS (3)
  1. CRESTOR [Suspect]
     Route: 048
     Dates: start: 20090713
  2. RESTORIL [Concomitant]
     Indication: INSOMNIA
  3. SYNTHROID [Concomitant]
     Indication: HYPOTHYROIDISM

REACTIONS (7)
  - ARTHRALGIA [None]
  - CONSTIPATION [None]
  - EPISTAXIS [None]
  - HEADACHE [None]
  - MYALGIA [None]
  - URGE INCONTINENCE [None]
  - WEIGHT INCREASED [None]
